FAERS Safety Report 8646015 (Version 8)
Quarter: 2013Q2

REPORT INFORMATION
  Report Type: Spontaneous
  Country: US (occurrence: US)
  Receive Date: 20120702
  Receipt Date: 20130506
  Transmission Date: 20140414
  Serious: Yes (Hospitalization, Disabling, Other)
  Sender: FDA-Public Use
  Company Number: US-009507513-1206USA04942

PATIENT
  Sex: Female

DRUGS (7)
  1. FOSAMAX [Suspect]
     Indication: OSTEOPENIA
     Dosage: 70 MG, QW
     Route: 048
     Dates: start: 20000101, end: 20081231
  2. PRILOSEC OTC [Concomitant]
     Indication: METAPLASIA
     Dosage: 20 MG, BID
     Route: 048
     Dates: start: 19950101, end: 20120310
  3. ACTONEL [Suspect]
     Indication: OSTEOPENIA
     Dosage: 35 MG, UNK
     Route: 048
     Dates: start: 20090101, end: 20091231
  4. BONIVA [Suspect]
     Indication: OSTEOPENIA
  5. BONIVA [Suspect]
     Indication: OSTEOPOROSIS
  6. FOSAMAX PLUS D [Suspect]
     Dosage: UNK, QW
     Route: 048
  7. HORMONES (UNSPECIFIED) [Concomitant]
     Dosage: UNK
     Dates: start: 19980101, end: 20081231

REACTIONS (44)
  - Femur fracture [Not Recovered/Not Resolved]
  - Low turnover osteopathy [Not Recovered/Not Resolved]
  - Osteoporosis [Not Recovered/Not Resolved]
  - Stress fracture [Not Recovered/Not Resolved]
  - Joint arthroplasty [Unknown]
  - Open reduction of fracture [Unknown]
  - Toe operation [Unknown]
  - Bunion operation [Unknown]
  - Salpingo-oophorectomy bilateral [Unknown]
  - Foot operation [Unknown]
  - Bunion operation [Unknown]
  - Atypical femur fracture [Not Recovered/Not Resolved]
  - Depression [Not Recovered/Not Resolved]
  - Anxiety [Not Recovered/Not Resolved]
  - Hypoparathyroidism [Unknown]
  - Bursitis [Unknown]
  - Drug intolerance [Unknown]
  - Cholesteatoma removal [Unknown]
  - Cholesteatoma [Unknown]
  - Biopsy breast normal [Unknown]
  - Bone density decreased [Unknown]
  - Foot fracture [Unknown]
  - Dysphonia [Unknown]
  - Hypercalcaemia [Unknown]
  - Hyperparathyroidism [Unknown]
  - Hypercoagulation [Unknown]
  - Temperature intolerance [Unknown]
  - Parathyroid disorder [Unknown]
  - Thyroid neoplasm [Unknown]
  - Blood creatinine increased [Unknown]
  - Glomerular filtration rate increased [Unknown]
  - Salpingitis [Unknown]
  - Pelvic adhesions [Unknown]
  - Ovarian cyst [Unknown]
  - Hiatus hernia [Unknown]
  - Helicobacter gastritis [Unknown]
  - Foot deformity [Unknown]
  - Atrophic vulvovaginitis [Unknown]
  - Hypothyroidism [Unknown]
  - Bunion [Unknown]
  - Gastrooesophageal reflux disease [Unknown]
  - Gastritis [Unknown]
  - Hypocalcaemia [Unknown]
  - Drug ineffective [Unknown]
